FAERS Safety Report 24552706 (Version 1)
Quarter: 2024Q4

REPORT INFORMATION
  Report Type: Spontaneous
  Country: ES (occurrence: ES)
  Receive Date: 20241027
  Receipt Date: 20241027
  Transmission Date: 20250114
  Serious: Yes (Death, Hospitalization)
  Sender: AUROBINDO
  Company Number: ES-AEMPS-1580797

PATIENT
  Age: 92 Year
  Sex: Female

DRUGS (1)
  1. FUROSEMIDE [Suspect]
     Active Substance: FUROSEMIDE
     Indication: Hypernatraemia
     Dosage: 80 MILLIGRAM, ONCE A DAY
     Route: 048
     Dates: start: 20240916, end: 20240917

REACTIONS (4)
  - Hypernatraemia [Fatal]
  - Somnolence [Fatal]
  - Drug ineffective [Fatal]
  - Product selection error [Recovered/Resolved]

NARRATIVE: CASE EVENT DATE: 20240916
